FAERS Safety Report 9720816 (Version 1)
Quarter: 2013Q4

REPORT INFORMATION
  Report Type: Spontaneous
  Country: FR (occurrence: FR)
  Receive Date: 20131129
  Receipt Date: 20131129
  Transmission Date: 20140711
  Serious: Yes (Hospitalization)
  Sender: FDA-Public Use
  Company Number: FR-JNJFOC-20131115553

PATIENT
  Age: 54 Year
  Sex: Female

DRUGS (7)
  1. INFLIXIMAB, RECOMBINANT [Suspect]
     Indication: RHEUMATOID ARTHRITIS
     Dosage: FOR 12 YEARS
     Route: 042
     Dates: end: 20130711
  2. INFLIXIMAB, RECOMBINANT [Suspect]
     Indication: RHEUMATOID ARTHRITIS
     Dosage: FOR 12 YEARS
     Route: 042
     Dates: start: 2001
  3. METHOTREXATE [Suspect]
     Indication: RHEUMATOID ARTHRITIS
     Route: 048
     Dates: start: 2001, end: 20130809
  4. SPECIAFOLDINE [Concomitant]
     Route: 065
  5. TAREG [Concomitant]
     Indication: HYPERTENSION
     Route: 065
  6. INEXIUM [Concomitant]
     Route: 065
  7. DOLIPRANE [Concomitant]
     Route: 065

REACTIONS (1)
  - Bronchopulmonary aspergillosis [Recovering/Resolving]
